FAERS Safety Report 21136186 (Version 2)
Quarter: 2022Q3

REPORT INFORMATION
  Report Type: Spontaneous
  Country: US (occurrence: US)
  Receive Date: 20220727
  Receipt Date: 20220909
  Transmission Date: 20221027
  Serious: Yes (Hospitalization)
  Sender: FDA-Public Use
  Company Number: US-JNJFOC-20220748571

PATIENT
  Age: 61 Year
  Sex: Male
  Weight: 70 kg

DRUGS (13)
  1. XARELTO [Suspect]
     Active Substance: RIVAROXABAN
     Indication: Product used for unknown indication
     Route: 048
     Dates: start: 2019
  2. GUAIFENESIN [Concomitant]
     Active Substance: GUAIFENESIN
  3. LEVOFLOXACIN [Concomitant]
     Active Substance: LEVOFLOXACIN
     Route: 048
     Dates: start: 20220510
  4. NICOTINE [Concomitant]
     Active Substance: NICOTINE
     Dates: start: 20220510
  5. PREDNISONE [Concomitant]
     Active Substance: PREDNISONE
     Dosage: WITH BREAKFAST FOR 10 DAYS
     Route: 048
     Dates: start: 20220510
  6. ASPIRIN [Concomitant]
     Active Substance: ASPIRIN
     Route: 048
  7. METOPROLOL SUCCINATE [Concomitant]
     Active Substance: METOPROLOL SUCCINATE
  8. NITROGLYCERIN [Concomitant]
     Active Substance: NITROGLYCERIN
  9. TIOTROPIUM [Concomitant]
     Active Substance: TIOTROPIUM
     Route: 045
  10. CEPHALEXIN [Concomitant]
     Active Substance: CEPHALEXIN
  11. FLUOXETINE [Concomitant]
     Active Substance: FLUOXETINE HYDROCHLORIDE
  12. OFLOXACIN [Concomitant]
     Active Substance: OFLOXACIN
  13. ONDANSETRON [Concomitant]
     Active Substance: ONDANSETRON

REACTIONS (3)
  - Suicide attempt [Unknown]
  - Intentional product misuse [Unknown]
  - Depression [Recovering/Resolving]

NARRATIVE: CASE EVENT DATE: 20220504
